FAERS Safety Report 9818036 (Version 1)
Quarter: 2013Q4

REPORT INFORMATION
  Report Type: Spontaneous
  Country: US (occurrence: None)
  Receive Date: 20131223
  Receipt Date: 20131223
  Transmission Date: 20140711
  Serious: No
  Sender: FDA-Public Use
  Company Number: 219759

PATIENT
  Age: 70 Year
  Sex: Female

DRUGS (6)
  1. PICATO [Suspect]
     Indication: ACTINIC KERATOSIS
     Dosage: (FOR 3 DAYS), TOPICAL
     Route: 061
     Dates: start: 20121121, end: 20121123
  2. PROGRAF (TACROLIMUS) [Concomitant]
  3. CELLCEPT (MYCOPHENOLATE MOFETIL) TABLET [Concomitant]
  4. NEXIUM (ESOMEPRAZOLE MAGNESIUM) [Concomitant]
  5. DIOVAN (VALSARTAN) [Concomitant]
  6. VITAMIN D (VITAMIN D NOS) [Concomitant]

REACTIONS (4)
  - Application site erythema [None]
  - Application site pain [None]
  - Application site swelling [None]
  - Application site exfoliation [None]
